FAERS Safety Report 17279876 (Version 1)
Quarter: 2020Q1

REPORT INFORMATION
  Report Type: Spontaneous
  Country: US (occurrence: US)
  Receive Date: 20200116
  Receipt Date: 20200116
  Transmission Date: 20200409
  Serious: Yes (Death, Hospitalization, Other)
  Sender: FDA-Public Use
  Company Number: US-ABBVIE-20K-163-3235550-00

PATIENT
  Age: 72 Year
  Sex: Male

DRUGS (1)
  1. VENETOCLAX. [Suspect]
     Active Substance: VENETOCLAX
     Indication: CHRONIC LYMPHOCYTIC LEUKAEMIA
     Route: 048
     Dates: start: 201805, end: 201809

REACTIONS (7)
  - Atrial fibrillation [Not Recovered/Not Resolved]
  - Weight decreased [Not Recovered/Not Resolved]
  - Death [Fatal]
  - Disease complication [Unknown]
  - Pulmonary thrombosis [Not Recovered/Not Resolved]
  - Haemoglobin decreased [Not Recovered/Not Resolved]
  - Lymphoedema [Not Recovered/Not Resolved]

NARRATIVE: CASE EVENT DATE: 2018
